FAERS Safety Report 10170162 (Version 2)
Quarter: 2014Q2

REPORT INFORMATION
  Report Type: Spontaneous
  Country: CA (occurrence: CA)
  Receive Date: 20140513
  Receipt Date: 20140513
  Transmission Date: 20141212
  Serious: Yes (Death, Hospitalization)
  Sender: FDA-Public Use
  Company Number: CA-BAXTER-2014BAX019047

PATIENT
  Age: 70 Year
  Sex: Female

DRUGS (3)
  1. DIANEAL PD4 SOLUTION WITH 2.5% DEXTROSE AND 2.5 MEQ/L CALCIUM [Suspect]
     Indication: RENAL FAILURE
     Dosage: 3 BAGS
     Route: 033
     Dates: start: 201212, end: 20140408
  2. DIANEAL PD4 SOLUTION WITH 4.25% DEXTROSE AND 2.5 MEQ/L CALCIUM [Suspect]
     Indication: BLOOD PRESSURE INCREASED
     Route: 033
     Dates: start: 201403, end: 201403
  3. EXTRANEAL [Suspect]
     Indication: RENAL FAILURE
     Dosage: 1 BAG
     Route: 033
     Dates: start: 201212, end: 20140408

REACTIONS (2)
  - Cerebrovascular accident [Fatal]
  - Blood pressure increased [Recovered/Resolved]
